FAERS Safety Report 8509485-2 (Version None)
Quarter: 2012Q3

REPORT INFORMATION
  Report Type: 
  Country: None (occurrence: None)
  Receive Date: 20120703
  Receipt Date: 20120618
  Transmission Date: 20120928
  Serious: Yes (Death, Other)
  Sender: FDA-Public Use
  Company Number: 2012MA007576

PATIENT
  Age: 14 Year
  Sex: Female

DRUGS (2)
  1. FEVERALL [Suspect]
  2. TOLPERISONE (TOLPERISONE) [Suspect]

REACTIONS (4)
  - COMPLETED SUICIDE [None]
  - VISCERAL CONGESTION [None]
  - PULMONARY OEDEMA [None]
  - TOXICITY TO VARIOUS AGENTS [None]
